FAERS Safety Report 7948235-5 (Version None)
Quarter: 2011Q4

REPORT INFORMATION
  Report Type: 
  Country: None (occurrence: None)
  Receive Date: 20111125
  Receipt Date: 20111103
  Transmission Date: 20120403
  Serious: Yes (Other)
  Sender: FDA-Public Use
  Company Number: JPI-P-009499

PATIENT
  Age: 41 Year
  Sex: Female
  Weight: 76.6579 kg

DRUGS (18)
  1. CLOMIPRAMINE HCL [Suspect]
     Indication: DEPRESSION
     Dates: end: 20090901
  2. XYREM [Suspect]
     Indication: NARCOLEPSY
     Dosage: 4.5 GM (2.25 GM, 1 IN 1 D), ORAL
     Route: 048
     Dates: start: 20060714
  3. OMEPRAZOLE [Concomitant]
  4. IRON [Concomitant]
  5. ESOMEPRAZOLE [Concomitant]
  6. LANSOPRAZOLE [Concomitant]
  7. XYREM [Suspect]
     Indication: NARCOLEPSY
     Dosage: SEE IMAGE: ORAL
     Route: 048
     Dates: end: 20091027
  8. XYREM [Suspect]
     Indication: NARCOLEPSY
     Dosage: SEE IMAGE: ORAL
     Route: 048
     Dates: start: 20100111, end: 20100101
  9. XYREM [Suspect]
     Indication: NARCOLEPSY
     Dosage: SEE IMAGE: ORAL
     Route: 048
     Dates: end: 20091027
  10. XYREM [Suspect]
     Indication: NARCOLEPSY
     Dosage: SEE IMAGE: ORAL
     Route: 048
     Dates: start: 20100111, end: 20100101
  11. XYREM [Suspect]
     Indication: NARCOLEPSY
     Dosage: SEE IMAGE: ORAL
     Route: 048
     Dates: start: 20111018
  12. XYREM [Suspect]
     Indication: NARCOLEPSY
     Dosage: SEE IMAGE: ORAL
     Route: 048
     Dates: start: 20100106, end: 20100110
  13. XYREM [Suspect]
     Indication: NARCOLEPSY
     Dosage: SEE IMAGE: ORAL
     Route: 048
     Dates: start: 20100106, end: 20100110
  14. XYREM [Suspect]
     Indication: NARCOLEPSY
     Dosage: SEE IMAGE: ORAL
     Route: 048
     Dates: start: 20100101
  15. XYREM [Suspect]
     Indication: NARCOLEPSY
     Dosage: SEE IMAGE: ORAL
     Route: 048
     Dates: start: 20091101, end: 20091215
  16. XYREM [Suspect]
     Indication: NARCOLEPSY
     Dosage: SEE IMAGE: ORAL
     Route: 048
     Dates: start: 20091101, end: 20091215
  17. CITALOPRAM [Concomitant]
  18. ESCITALOPRAM OXALATE [Concomitant]

REACTIONS (6)
  - BREAST CANCER FEMALE [None]
  - VOMITING [None]
  - INITIAL INSOMNIA [None]
  - HUNGER [None]
  - INFLUENZA LIKE ILLNESS [None]
  - WEIGHT INCREASED [None]
